FAERS Safety Report 24940974 (Version 2)
Quarter: 2025Q1

REPORT INFORMATION
  Report Type: Spontaneous
  Country: US (occurrence: None)
  Receive Date: 20250207
  Receipt Date: 20250218
  Transmission Date: 20250408
  Serious: Yes (Hospitalization, Other)
  Sender: ACS DOBFAR
  Company Number: US-ACS-20250084

PATIENT
  Age: 46 Year
  Sex: Female

DRUGS (3)
  1. CEFTRIAXONE [Suspect]
     Active Substance: CEFTRIAXONE
  2. DEXAMETHASONE [Concomitant]
     Active Substance: DEXAMETHASONE
  3. DEPO-MEDROL [Concomitant]
     Active Substance: METHYLPREDNISOLONE ACETATE

REACTIONS (1)
  - Anaphylactic reaction [Unknown]
